FAERS Safety Report 7653427-9 (Version None)
Quarter: 2011Q3

REPORT INFORMATION
  Report Type: 
  Country: None (occurrence: None)
  Receive Date: 20110803
  Receipt Date: 20110726
  Transmission Date: 20111222
  Serious: Yes (Hospitalization)
  Sender: FDA-Public Use
  Company Number: US-SHIRE-ALL1-2011-02479

PATIENT
  Sex: Male
  Weight: 37.8 kg

DRUGS (16)
  1. ELAPRASE [Suspect]
     Indication: MUCOPOLYSACCHARIDOSIS II
     Dosage: 18 MG, 1X/WEEK
     Route: 041
     Dates: start: 20070312
  2. RIBOFLAVIN [Concomitant]
     Indication: HEADACHE
     Dosage: 400 MG, 1X/DAY:QD
     Route: 048
  3. ACETAMINOPHEN [Concomitant]
     Indication: PREMEDICATION
     Dosage: 500 MG, ONE DOSE
     Route: 048
     Dates: start: 20110726
  4. CITALOPRAM HYDROBROMIDE [Concomitant]
     Indication: PRODUCT USED FOR UNKNOWN INDICATION
     Dosage: 40 MG, 1X/DAY:QD
     Route: 048
  5. CLARITIN                           /00917501/ [Concomitant]
     Indication: PREMEDICATION
     Dosage: 10 MG, ONE DOSE
     Route: 048
     Dates: start: 20110726
  6. FERROUS SULFATE TAB [Concomitant]
     Indication: IRON DEFICIENCY
     Dosage: 650 MG, 1X/DAY:QD
     Route: 048
  7. ZOFRAN [Concomitant]
     Indication: VOMITING
  8. OXYCODONE HCL [Concomitant]
     Indication: PAIN
     Dosage: 5 MG, AS REQ'D(EVERY 4 HOURS AS NEEDED)
     Route: 048
  9. TIZANIDINE HCL [Concomitant]
     Indication: PRODUCT USED FOR UNKNOWN INDICATION
     Dosage: 4 MG, 2X/DAY:BID
     Route: 048
  10. CYANOCOBALAMIN [Concomitant]
     Indication: HEADACHE
     Dosage: 500 ?G, 1X/DAY:QD
     Route: 048
  11. ZOFRAN [Concomitant]
     Indication: NAUSEA
     Dosage: 4 MG, 1X/DAY:QD
     Route: 048
  12. COENZYME Q10 [Concomitant]
     Indication: HEADACHE
     Dosage: 100 MG, 1X/DAY:QD
     Route: 048
  13. OXYCONTIN [Concomitant]
     Indication: PAIN
     Dosage: 10 MG, 2X/DAY:BID(EVERY 12 HOURS)
     Route: 048
  14. XOPENEX [Concomitant]
     Indication: WHEEZING
     Dosage: UNK, AS REQ'D(0.63MG/3ML)
     Route: 055
  15. MIRALAX                            /00754501/ [Concomitant]
     Indication: CONSTIPATION
     Dosage: 17 MG, 1X/DAY:QD
     Route: 048
  16. MAGNESIUM OXIDE [Concomitant]
     Indication: HEADACHE
     Dosage: 242 MG, 1X/DAY:QD
     Route: 048

REACTIONS (9)
  - MYELOPATHY [None]
  - MOBILITY DECREASED [None]
  - NECK PAIN [None]
  - INFUSION RELATED REACTION [None]
  - HEADACHE [None]
  - URTICARIA [None]
  - CERVICAL CORD COMPRESSION [None]
  - SOMNOLENCE [None]
  - EYE SWELLING [None]
